FAERS Safety Report 15424046 (Version 1)
Quarter: 2018Q3

REPORT INFORMATION
  Report Type: Spontaneous
  Country: US (occurrence: US)
  Receive Date: 20180914
  Receipt Date: 20180914
  Transmission Date: 20181010
  Serious: No
  Sender: FDA-Public Use
  Company Number: None

PATIENT
  Age: 50 Year
  Sex: Female

DRUGS (1)
  1. TREMFYA [Suspect]
     Active Substance: GUSELKUMAB
     Dates: start: 201808

REACTIONS (3)
  - Pharyngitis streptococcal [None]
  - Diarrhoea [None]
  - Weight increased [None]

NARRATIVE: CASE EVENT DATE: 20180914
